FAERS Safety Report 8049825-4 (Version None)
Quarter: 2012Q1

REPORT INFORMATION
  Report Type: 
  Country: None (occurrence: None)
  Receive Date: 20120110
  Receipt Date: 20110831
  Transmission Date: 20120608
  Serious: Yes (Hospitalization, Other)
  Sender: FDA-Public Use
  Company Number: ADR-2012-00027

PATIENT
  Age: 28 Year
  Sex: Female

DRUGS (6)
  1. BACLOFEN [Suspect]
     Indication: CANCER PAIN
  2. BACLOFEN [Suspect]
     Indication: NEOPLASM MALIGNANT
  3. BUPIVACAINE HCL [Concomitant]
  4. DROPERIDOL [Concomitant]
  5. MORPHINE [Concomitant]
  6. CLONIDINE [Concomitant]

REACTIONS (3)
  - INCISION SITE COMPLICATION [None]
  - ABDOMINAL WALL ABSCESS [None]
  - WOUND INFECTION [None]
